FAERS Safety Report 21410041 (Version 3)
Quarter: 2022Q4

REPORT INFORMATION
  Report Type: Spontaneous
  Country: MX (occurrence: None)
  Receive Date: 20221005
  Receipt Date: 20221028
  Transmission Date: 20230113
  Serious: Yes (Hospitalization, Disabling, Other)
  Sender: FDA-Public Use
  Company Number: MX-ROCHE-3193984

PATIENT
  Sex: Female
  Weight: 57 kg

DRUGS (1)
  1. KADCYLA [Suspect]
     Active Substance: ADO-TRASTUZUMAB EMTANSINE
     Indication: Breast cancer
     Route: 042
     Dates: start: 20151121

REACTIONS (15)
  - Lung neoplasm malignant [Recovering/Resolving]
  - Brain neoplasm malignant [Recovered/Resolved]
  - Neoplasm malignant [Recovering/Resolving]
  - Discomfort [Unknown]
  - Fall [Not Recovered/Not Resolved]
  - Pain in extremity [Recovered/Resolved]
  - Speech disorder [Not Recovered/Not Resolved]
  - Contusion [Recovered/Resolved]
  - Blindness [Not Recovered/Not Resolved]
  - Tremor [Not Recovered/Not Resolved]
  - Breast cancer recurrent [Recovering/Resolving]
  - Fatigue [Recovering/Resolving]
  - Gait disturbance [Recovering/Resolving]
  - Limb injury [Recovered/Resolved]
  - Brain oedema [Not Recovered/Not Resolved]

NARRATIVE: CASE EVENT DATE: 20170101
